FAERS Safety Report 15038510 (Version 1)
Quarter: 2018Q2

REPORT INFORMATION
  Report Type: Spontaneous
  Country: NL (occurrence: NL)
  Receive Date: 20180620
  Receipt Date: 20180620
  Transmission Date: 20180711
  Serious: Yes (Hospitalization, Other)
  Sender: FDA-Public Use
  Company Number: PHHY2018NL024607

PATIENT
  Sex: Female

DRUGS (4)
  1. AMOXICILLIN + CLAVULANATE POTASSIUM [Suspect]
     Active Substance: AMOXICILLIN\CLAVULANATE POTASSIUM
     Indication: PRODUCT USED FOR UNKNOWN INDICATION
     Dosage: UNK
     Route: 065
  2. PROGESTERONE. [Suspect]
     Active Substance: PROGESTERONE
     Indication: PREMATURE LABOUR
     Dosage: UNK
     Route: 067
  3. CELESTON [Concomitant]
     Active Substance: BETAMETHASONE
     Indication: PRODUCT USED FOR UNKNOWN INDICATION
     Dosage: 12 MG, QD
     Route: 030
  4. NIFEDIPINE. [Suspect]
     Active Substance: NIFEDIPINE
     Indication: PREMATURE LABOUR
     Dosage: UNK
     Route: 065

REACTIONS (4)
  - Maternal exposure during pregnancy [Unknown]
  - Premature delivery [Unknown]
  - Off label use [Unknown]
  - Product use in unapproved indication [Unknown]
